FAERS Safety Report 18247339 (Version 6)
Quarter: 2021Q2

REPORT INFORMATION
  Report Type: Report from Study
  Country: US (occurrence: US)
  Receive Date: 20200909
  Receipt Date: 20210512
  Transmission Date: 20210717
  Serious: Yes (Hospitalization)
  Sender: FDA-Public Use
  Company Number: US-AMRYT PHARMACEUTICALS DAC-AEGR004958

PATIENT
  Age: 38 Year
  Sex: Female

DRUGS (46)
  1. CLONAZEPAM. [Concomitant]
     Active Substance: CLONAZEPAM
     Dosage: 0.5 MILLIGRAM, BID
     Route: 048
     Dates: start: 20201027
  2. BUPRENORPHINE HCL [Concomitant]
     Active Substance: BUPRENORPHINE HYDROCHLORIDE
     Indication: PAIN
     Dosage: 225 MICROGRAM, QD
     Route: 002
     Dates: start: 20201014, end: 20201015
  3. PANTOPRAZOLE [Concomitant]
     Active Substance: PANTOPRAZOLE
     Dosage: 40 MILLIGRAM, BID
     Route: 048
     Dates: start: 20201001, end: 20201027
  4. ZOSYN [Concomitant]
     Active Substance: PIPERACILLIN SODIUM\TAZOBACTAM SODIUM
     Indication: PRODUCT USED FOR UNKNOWN INDICATION
     Dosage: 4.5 MILLIGRAM, QID
     Dates: start: 20201011, end: 20201012
  5. HYDROMORPHONE [Concomitant]
     Active Substance: HYDROMORPHONE
     Indication: PAIN
     Dosage: 8 MG, TID PRN
     Route: 048
     Dates: end: 20200831
  6. ENOXAPARIN [Concomitant]
     Active Substance: ENOXAPARIN
     Indication: THROMBOSIS PROPHYLAXIS
     Dosage: 40 MILLIGRAM, QD
     Route: 058
     Dates: start: 20200905, end: 20200907
  7. IOHEXOL [Concomitant]
     Active Substance: IOHEXOL
     Indication: SCAN WITH CONTRAST
     Dosage: 100 MILLILITER, SINGLE
     Route: 042
     Dates: start: 20200918, end: 20200918
  8. METRELEPTIN [Suspect]
     Active Substance: METRELEPTIN
     Indication: PARTIAL LIPODYSTROPHY
     Dosage: 7.5 MG AT TWO SITES (4 MG AT ONE AND 3.5 MG AT THE OTHER), QD
     Route: 058
     Dates: start: 20200722
  9. CHOLECALCIFEROL [Concomitant]
     Active Substance: CHOLECALCIFEROL
     Dosage: 1000 IU INTERNATIONAL UNIT(S), Q WEEKLY
     Route: 048
     Dates: start: 20201214
  10. DEXLANSOPRAZOLE [Concomitant]
     Active Substance: DEXLANSOPRAZOLE
     Dosage: 60 MILLIGRAM, QD
     Route: 048
     Dates: start: 20210201
  11. INSULIN LISPRO [Concomitant]
     Active Substance: INSULIN LISPRO
     Indication: DIABETES MELLITUS
     Dosage: 20 IU, QID
     Route: 058
     Dates: end: 202006
  12. LEVOTHYROXINE. [Concomitant]
     Active Substance: LEVOTHYROXINE
     Dosage: 125 UG, QD
     Route: 048
     Dates: start: 20201028, end: 20201122
  13. ZENPEP [Concomitant]
     Active Substance: PANCRELIPASE AMYLASE\PANCRELIPASE LIPASE\PANCRELIPASE PROTEASE
     Indication: PANCREATECTOMY
     Dosage: 2 CAPSULES, TID
     Route: 048
  14. CARVEDILOL. [Concomitant]
     Active Substance: CARVEDILOL
     Dosage: 3125 UG, BID
     Route: 048
     Dates: start: 20201003, end: 20201004
  15. ENOXAPARIN [Concomitant]
     Active Substance: ENOXAPARIN
     Dosage: 40 MILLIGRAM, QD
     Route: 058
     Dates: start: 20201011, end: 20201013
  16. VANCOMYCIN [Concomitant]
     Active Substance: VANCOMYCIN
     Indication: STAPHYLOCOCCAL INFECTION
     Dosage: 750 MILLIGRAM, BID
     Route: 042
     Dates: start: 20201010, end: 20201012
  17. DEXLANSOPRAZOLE [Concomitant]
     Active Substance: DEXLANSOPRAZOLE
     Dosage: 30 MILLIGRAM, QD
     Route: 048
     Dates: start: 20201027, end: 20210131
  18. LEVOTHYROXINE. [Concomitant]
     Active Substance: LEVOTHYROXINE
     Indication: HYPOTHYROIDISM
     Dosage: 150 UG, QD
     Route: 048
     Dates: end: 20201027
  19. BUPRENORPHINE AND NALOXONE [Concomitant]
     Active Substance: BUPRENORPHINE HYDROCHLORIDE\NALOXONE HYDROCHLORIDE
     Dosage: 8?2MG, 1 APPLICATION
     Route: 002
     Dates: start: 20201020, end: 20201021
  20. PAMELOR [Concomitant]
     Active Substance: NORTRIPTYLINE HYDROCHLORIDE
     Dosage: 25 MILLIGRAM, QD
     Route: 048
     Dates: start: 20201024
  21. CHOLECALCIFEROL [Concomitant]
     Active Substance: CHOLECALCIFEROL
     Dosage: 1000 INTERNATIONAL UNIT, QD
     Route: 048
     Dates: start: 20200925, end: 20201211
  22. DEXLANSOPRAZOLE [Concomitant]
     Active Substance: DEXLANSOPRAZOLE
     Indication: GASTROOESOPHAGEAL REFLUX DISEASE
     Dosage: 60 MG, QD
     Route: 048
     Dates: end: 20201026
  23. LISINOPRIL. [Concomitant]
     Active Substance: LISINOPRIL
     Indication: HYPERTENSION
     Dosage: 10 MG, QD
     Route: 048
     Dates: end: 20201027
  24. PREGABALIN. [Concomitant]
     Active Substance: PREGABALIN
     Indication: PAIN
     Dosage: 50 MG, QD
     Route: 048
     Dates: end: 20200831
  25. BUPRENORPHINE HCL [Concomitant]
     Active Substance: BUPRENORPHINE HYDROCHLORIDE
     Dosage: 450 MICROGRAM, BID
     Route: 002
     Dates: start: 20201015, end: 20201015
  26. INFLUENZA VACCINE [Concomitant]
     Active Substance: INFLUENZA VIRUS VACCINE
     Indication: PROPHYLAXIS
     Dosage: 0.5 MILLILITER
     Route: 030
     Dates: start: 20201003
  27. SENOKOT [Concomitant]
     Active Substance: SENNOSIDES
     Indication: CONSTIPATION
     Dosage: 8.6 MILLIGRAM, PRN
     Route: 048
     Dates: start: 20201015, end: 20201015
  28. BUPRENORPHINE AND NALOXONE [Concomitant]
     Active Substance: BUPRENORPHINE HYDROCHLORIDE\NALOXONE HYDROCHLORIDE
     Dosage: 2?0.5MG, 1 APPLICATION, BID PRN
     Route: 002
     Dates: start: 20201017, end: 20201022
  29. CARVEDILOL. [Concomitant]
     Active Substance: CARVEDILOL
     Indication: HYPERTENSION
     Dosage: 3125 UG, ONCE
     Route: 048
     Dates: start: 20200901, end: 20200901
  30. PAMELOR [Concomitant]
     Active Substance: NORTRIPTYLINE HYDROCHLORIDE
     Indication: DEPRESSION
     Dosage: 10 MILLIGRAM, QD
     Route: 048
     Dates: start: 20201016, end: 20201016
  31. LIDOCAINE. [Concomitant]
     Active Substance: LIDOCAINE
     Indication: BIOPSY LIVER
     Dosage: 1 DOSAGE FORM, SINGLE
     Route: 058
     Dates: start: 20200908, end: 20200908
  32. INSULIN LISPRO [Concomitant]
     Active Substance: INSULIN LISPRO
     Dosage: 0.9 IU INTERNATIONAL UNIT(S), PER HOUR CONTINOUS VIA PUMP
     Route: 058
     Dates: start: 202006
  33. TIZANIDINE. [Concomitant]
     Active Substance: TIZANIDINE
     Indication: MUSCLE RELAXANT THERAPY
     Dosage: 2 MG, QPM PRN
     Route: 048
     Dates: end: 20201026
  34. METHADONE [Concomitant]
     Active Substance: METHADONE HYDROCHLORIDE
     Indication: PAIN
     Dosage: 2.5 MG, BID
     Route: 048
     Dates: end: 20200831
  35. BUPRENORPHINE AND NALOXONE [Concomitant]
     Active Substance: BUPRENORPHINE HYDROCHLORIDE\NALOXONE HYDROCHLORIDE
     Indication: PAIN
     Dosage: 12?3MG, 1 APPLICATION, BID PRN
     Route: 002
     Dates: start: 20201022
  36. CLONIDINE HCL [Concomitant]
     Active Substance: CLONIDINE HYDROCHLORIDE
     Indication: DRUG WITHDRAWAL SYNDROME
     Dosage: 0.1 MILLIGRAM, TID PRN
     Route: 048
     Dates: start: 20201023, end: 20201024
  37. BENADRYL [Concomitant]
     Active Substance: DIPHENHYDRAMINE HYDROCHLORIDE
     Dosage: 25 MILLIGRAM, PRN
     Route: 042
     Dates: start: 20200902, end: 20201020
  38. CHOLECALCIFEROL [Concomitant]
     Active Substance: CHOLECALCIFEROL
     Indication: VITAMIN D DEFICIENCY
     Dosage: 1250 UG, WEEKLY
     Route: 048
     Dates: end: 20200924
  39. CLONAZEPAM. [Concomitant]
     Active Substance: CLONAZEPAM
     Indication: ANXIETY
     Dosage: 0.5 MG, TID
     Route: 048
     Dates: end: 20201026
  40. LEVOTHYROXINE. [Concomitant]
     Active Substance: LEVOTHYROXINE
     Dosage: 112 UG, QD
     Route: 048
     Dates: start: 20201123
  41. ONDANSETRON [Concomitant]
     Active Substance: ONDANSETRON
     Indication: GASTROOESOPHAGEAL REFLUX DISEASE
     Dosage: 4 MG, PRN
     Route: 060
  42. TIZANIDINE. [Concomitant]
     Active Substance: TIZANIDINE
     Dosage: 6MG, Q6HRS PRN
     Route: 048
     Dates: start: 20201027
  43. AMLODIPINE [Concomitant]
     Active Substance: AMLODIPINE BESYLATE
     Indication: HYPERTENSION
     Dosage: 10 MILLIGRAM, QD
     Route: 048
     Dates: start: 20201025
  44. BENADRYL [Concomitant]
     Active Substance: DIPHENHYDRAMINE HYDROCHLORIDE
     Indication: PRURITUS
     Dosage: 12.5 MILLIGRAM, PRN
     Route: 042
     Dates: start: 20200831, end: 20200901
  45. PANTOPRAZOLE [Concomitant]
     Active Substance: PANTOPRAZOLE
     Indication: GASTROOESOPHAGEAL REFLUX DISEASE
     Dosage: 40 MILLIGRAM, BID
     Route: 042
     Dates: start: 20200908, end: 20200908
  46. THIAMINE. [Concomitant]
     Active Substance: THIAMINE
     Indication: SUPPLEMENTATION THERAPY
     Dosage: 100 MILLIGRAM, QD
     Route: 048
     Dates: start: 20201013

REACTIONS (8)
  - Enteritis [Recovered/Resolved]
  - Vulvovaginal mycotic infection [Recovered/Resolved]
  - Speech disorder [Unknown]
  - Malaise [Unknown]
  - Non-cardiac chest pain [Recovered/Resolved]
  - Hospitalisation [Unknown]
  - Nausea [Recovered/Resolved]
  - Anaemia [Recovered/Resolved]

NARRATIVE: CASE EVENT DATE: 20200831
